FAERS Safety Report 19363972 (Version 1)
Quarter: 2021Q2

REPORT INFORMATION
  Report Type: Spontaneous
  Country: US (occurrence: US)
  Receive Date: 20210603
  Receipt Date: 20210603
  Transmission Date: 20210717
  Serious: Yes (Other)
  Sender: FDA-Public Use
  Company Number: US-SA-2021SA176515

PATIENT
  Sex: Female

DRUGS (2)
  1. HERCEPTIN [Concomitant]
     Active Substance: TRASTUZUMAB
  2. ELOXATIN [Suspect]
     Active Substance: OXALIPLATIN
     Dosage: UNK
     Route: 065

REACTIONS (1)
  - Oesophageal carcinoma [Unknown]
